FAERS Safety Report 5968273-1 (Version None)
Quarter: 2008Q4

REPORT INFORMATION
  Report Type: 
  Country: None (occurrence: None)
  Receive Date: 20081126
  Receipt Date: 20081118
  Transmission Date: 20090506
  Serious: Yes (Disabling)
  Sender: FDA-Public Use
  Company Number: FR-ASTRAZENECA-2008CG01128

PATIENT
  Age: 71 Year
  Sex: Male

DRUGS (1)
  1. MOPRAL [Suspect]
     Route: 048
     Dates: start: 19940101, end: 20080213

REACTIONS (1)
  - PERIPHERAL SENSORIMOTOR NEUROPATHY [None]
